FAERS Safety Report 7101656-5 (Version None)
Quarter: 2010Q4

REPORT INFORMATION
  Report Type: 
  Country: None (occurrence: None)
  Receive Date: 20101115
  Receipt Date: 20101108
  Transmission Date: 20110411
  Serious: Yes (Hospitalization)
  Sender: FDA-Public Use
  Company Number: US-BAYER-201040630NA

PATIENT
  Age: 58 Year
  Sex: Female

DRUGS (4)
  1. BETASERON [Suspect]
     Indication: MULTIPLE SCLEROSIS
     Dosage: TOTAL DAILY DOSE: 2 MIU
     Route: 058
     Dates: start: 20101108
  2. BETASERON [Suspect]
     Route: 065
     Dates: start: 19980227, end: 20070101
  3. BETASERON [Suspect]
     Dosage: UNKNOWN DOSAGE
     Dates: start: 20080319, end: 20080912
  4. IBUPROFEN [Concomitant]
     Dosage: AS USED: 400 MG

REACTIONS (3)
  - GASTRIC CANCER [None]
  - MEMORY IMPAIRMENT [None]
  - WEIGHT DECREASED [None]
